FAERS Safety Report 8573253-6 (Version None)
Quarter: 2012Q3

REPORT INFORMATION
  Report Type: 
  Country: None (occurrence: None)
  Receive Date: 20120806
  Receipt Date: 20120801
  Transmission Date: 20120928
  Serious: Yes (Disabling, Other)
  Sender: FDA-Public Use
  Company Number: US-ROCHE-1051459

PATIENT
  Sex: Female
  Weight: 84.444 kg

DRUGS (9)
  1. PROAIR HFA [Concomitant]
     Indication: ASTHMA
  2. OMEPRAZOLE [Concomitant]
     Route: 048
  3. OMALIZUMAB [Suspect]
     Route: 058
     Dates: start: 20060201
  4. XOPENEX [Concomitant]
     Indication: ASTHMA
  5. ALVESCO [Concomitant]
     Indication: ASTHMA
  6. SPIRIVA [Concomitant]
     Indication: ASTHMA
  7. PREDNISONE [Concomitant]
     Indication: ASTHMA
  8. DILTIAZEM [Concomitant]
     Dosage: DAILY
     Route: 048
  9. OMALIZUMAB [Suspect]
     Indication: ASTHMA
     Route: 058

REACTIONS (2)
  - UPPER LIMB FRACTURE [None]
  - ASTHMA [None]
